FAERS Safety Report 23389174 (Version 2)
Quarter: 2024Q1

REPORT INFORMATION
  Report Type: Spontaneous
  Country: US (occurrence: None)
  Receive Date: 20240110
  Receipt Date: 20240216
  Transmission Date: 20240409
  Serious: Yes (Hospitalization)
  Sender: FDA-Public Use
  Company Number: US-ROCHE-3485019

PATIENT
  Age: 83 Year
  Sex: Female
  Weight: 77.18 kg

DRUGS (2)
  1. AVASTIN [Suspect]
     Active Substance: BEVACIZUMAB
     Indication: Post procedural swelling
     Route: 042
     Dates: start: 20231120, end: 20231120
  2. ZIRABEV [Suspect]
     Active Substance: BEVACIZUMAB-BVZR
     Indication: Post procedural swelling
     Route: 042
     Dates: start: 20230601, end: 20231204

REACTIONS (8)
  - Hip fracture [Recovered/Resolved]
  - Fall [Unknown]
  - Tremor [Not Recovered/Not Resolved]
  - Skin discolouration [Not Recovered/Not Resolved]
  - Dysphonia [Recovered/Resolved]
  - Confusional state [Not Recovered/Not Resolved]
  - Off label use [Unknown]
  - Fatigue [Unknown]

NARRATIVE: CASE EVENT DATE: 20230601
